FAERS Safety Report 10078715 (Version 3)
Quarter: 2014Q3

REPORT INFORMATION
  Report Type: Spontaneous
  Country: IT (occurrence: None)
  Receive Date: 20140411
  Receipt Date: 20140709
  Transmission Date: 20150326
  Serious: Yes (Hospitalization)
  Sender: FDA-Public Use
  Company Number: SYM-2014-19560

PATIENT
  Age: 82 Year
  Sex: Female

DRUGS (2)
  1. TIMOPTOL [Suspect]
     Active Substance: TIMOLOL
     Indication: GLAUCOMA
     Dosage: 2 GTT, 1 IN 1 D, OPHTHALMIC
     Route: 047
     Dates: start: 20120101, end: 20140313
  2. MODURETIC 5-50 [Suspect]
     Active Substance: AMILORIDE HYDROCHLORIDE\HYDROCHLOROTHIAZIDE
     Indication: HYPERTENSION
     Route: 048
     Dates: start: 20120101, end: 20140313

REACTIONS (4)
  - Atrioventricular block second degree [None]
  - Hyponatraemia [None]
  - Supraventricular extrasystoles [None]
  - Sinus bradycardia [None]

NARRATIVE: CASE EVENT DATE: 20140313
